FAERS Safety Report 25890171 (Version 4)
Quarter: 2025Q4

REPORT INFORMATION
  Report Type: Spontaneous
  Country: JP (occurrence: JP)
  Receive Date: 20251007
  Receipt Date: 20251110
  Transmission Date: 20260118
  Serious: Yes (Other)
  Sender: REGENERON
  Company Number: JP-BAYER-2025A131523

PATIENT
  Age: 89 Year
  Sex: Male

DRUGS (2)
  1. EYLEA [Suspect]
     Active Substance: AFLIBERCEPT
     Indication: Neovascular age-related macular degeneration
     Dosage: UNK, SOLUTION FOR INJECTION IN PRE-FILLED SYRINGE, 114.3 MG/ML
     Dates: start: 20240723
  2. EYLEA [Suspect]
     Active Substance: AFLIBERCEPT
     Indication: Retinal vein occlusion
     Dosage: 8 MG, ONCE, RIGHT EYE, TOTAL OF 2 DOSES PRIOR TO THE EVENT , SOLUTION FOR INJECTION IN PRE-FILLED SY
     Dates: start: 20250926, end: 20250926

REACTIONS (4)
  - Blindness unilateral [Recovering/Resolving]
  - Eye inflammation [Unknown]
  - Fundoscopy abnormal [Not Recovered/Not Resolved]
  - Eye pain [Unknown]

NARRATIVE: CASE EVENT DATE: 20250927
